FAERS Safety Report 14169982 (Version 1)
Quarter: 2017Q4

REPORT INFORMATION
  Report Type: Spontaneous
  Country: IT (occurrence: IT)
  Receive Date: 20171108
  Receipt Date: 20171108
  Transmission Date: 20180321
  Serious: Yes (Other)
  Sender: FDA-Public Use
  Company Number: PHHY2017IT164398

PATIENT
  Age: 30 Year
  Sex: Male

DRUGS (4)
  1. FLUIBRON [Concomitant]
     Active Substance: AMBROXOL HYDROCHLORIDE
     Indication: PRODUCT USED FOR UNKNOWN INDICATION
     Dosage: NEBULIZER SOLUTION
     Route: 065
  2. FLUIMUCIL [Concomitant]
     Active Substance: ACETYLCYSTEINE
     Indication: PRODUCT USED FOR UNKNOWN INDICATION
     Route: 065
  3. AMOXICILLIN + CLAVULANATE POTASSIUM [Suspect]
     Active Substance: AMOXICILLIN\CLAVULANATE POTASSIUM
     Indication: PRODUCTIVE COUGH
     Dosage: 2 DF, QD
     Route: 048
     Dates: start: 20100927, end: 20101006
  4. BECLOMETASONE [Concomitant]
     Active Substance: BECLOMETHASONE DIPROPIONATE
     Indication: PRODUCT USED FOR UNKNOWN INDICATION
     Route: 065

REACTIONS (1)
  - Dysentery [Recovered/Resolved]

NARRATIVE: CASE EVENT DATE: 20100930
